FAERS Safety Report 15855409 (Version 4)
Quarter: 2019Q1

REPORT INFORMATION
  Report Type: Not Available
  Country: US (occurrence: US)
  Receive Date: 20190122
  Receipt Date: 20190323
  Transmission Date: 20190417
  Serious: Yes (Hospitalization)
  Sender: FDA-Public Use
  Company Number: US-NEUROCRINE BIOSCIENCES INC.-2019NBI00210

PATIENT
  Sex: Male

DRUGS (12)
  1. TRAZODONE [Concomitant]
     Active Substance: TRAZODONE HYDROCHLORIDE
     Dosage: ONE TABLET AT BEDTIME
  2. VITAMIN E [Concomitant]
     Active Substance: .ALPHA.-TOCOPHEROL
  3. RISPERIDONE. [Concomitant]
     Active Substance: RISPERIDONE
     Dosage: AT BEDTIME
  4. FLUOXETINE HCL [Concomitant]
     Active Substance: FLUOXETINE HYDROCHLORIDE
     Route: 048
  5. METFORMIN [Concomitant]
     Active Substance: METFORMIN HYDROCHLORIDE
     Indication: DIABETES MELLITUS
  6. FOLIC ACID. [Concomitant]
     Active Substance: FOLIC ACID
     Dosage: ONE TABLET IN THE MORNING
  7. BENZTROPINE. [Concomitant]
     Active Substance: BENZTROPINE
     Indication: EXTRAPYRAMIDAL DISORDER
     Route: 048
  8. GLIPIZIDE ER [Concomitant]
     Active Substance: GLIPIZIDE
     Route: 048
  9. PROPRANOLOL [Concomitant]
     Active Substance: PROPRANOLOL HYDROCHLORIDE
  10. LINZESS [Concomitant]
     Active Substance: LINACLOTIDE
     Indication: TONGUE MOVEMENT DISTURBANCE
     Route: 048
  11. SIMVASTATIN. [Concomitant]
     Active Substance: SIMVASTATIN
     Dosage: IN MORNING
  12. INGREZZA [Suspect]
     Active Substance: VALBENAZINE
     Indication: TARDIVE DYSKINESIA
     Route: 048
     Dates: start: 20180308

REACTIONS (6)
  - Dementia [Not Recovered/Not Resolved]
  - Balance disorder [Not Recovered/Not Resolved]
  - Contusion [Recovered/Resolved]
  - Drug ineffective [None]
  - Fall [Not Recovered/Not Resolved]
  - Dizziness [Not Recovered/Not Resolved]
